FAERS Safety Report 7110230-6 (Version None)
Quarter: 2010Q4

REPORT INFORMATION
  Report Type: 
  Country: None (occurrence: None)
  Receive Date: 20101118
  Receipt Date: 20101110
  Transmission Date: 20110411
  Serious: Yes (Hospitalization)
  Sender: FDA-Public Use
  Company Number: FR-BAYER-201024275GPV

PATIENT
  Age: 69 Year
  Sex: Male
  Weight: 48 kg

DRUGS (35)
  1. SORAFENIB [Suspect]
     Indication: HEPATIC NEOPLASM MALIGNANT
     Dosage: TOTAL DAILY DOSE: 800 MG
     Route: 048
     Dates: start: 20091229, end: 20100125
  2. SORAFENIB [Suspect]
     Dosage: TOTAL DAILY DOSE: 400 MG
     Route: 048
     Dates: start: 20100208, end: 20100429
  3. DOXORUBICIN HCL [Suspect]
     Indication: HEPATIC NEOPLASM MALIGNANT
  4. KARDEGIC [Concomitant]
     Indication: VASCULAR GRAFT
     Dates: start: 20030101, end: 20091222
  5. KARDEGIC [Concomitant]
     Dates: start: 20100108
  6. ZANIDIP [Concomitant]
     Indication: HYPERTENSION
     Dates: start: 20030101
  7. COZAAR [Concomitant]
     Indication: HYPERTENSION
     Dates: start: 20030101
  8. TARDYFERON B9 [Concomitant]
     Indication: IRON DEFICIENCY ANAEMIA
     Dates: start: 20091101
  9. ATARAX [Concomitant]
     Indication: THERAPEUTIC EMBOLISATION
     Dates: start: 20100105, end: 20100105
  10. ATARAX [Concomitant]
     Dates: start: 20100110, end: 20100402
  11. ATARAX [Concomitant]
     Dates: start: 20100223, end: 20100223
  12. ATARAX [Concomitant]
     Dates: start: 20100403
  13. SEVREDOL [Concomitant]
     Indication: THERAPEUTIC EMBOLISATION
     Dates: start: 20100105, end: 20100105
  14. SEVREDOL [Concomitant]
     Dates: start: 20100223, end: 20100223
  15. MOTILIUM [Concomitant]
     Indication: THERAPEUTIC EMBOLISATION
     Dates: start: 20100105, end: 20100105
  16. CONTRAMAL [Concomitant]
     Indication: ABDOMINAL PAIN
     Dates: start: 20100106, end: 20100114
  17. CONTRAMAL [Concomitant]
     Dates: start: 20100223, end: 20100228
  18. CONTRAMAL [Concomitant]
     Dates: start: 20100403, end: 20100421
  19. CONTRAMAL [Concomitant]
     Dates: start: 20100415
  20. PARACETAMOL [Concomitant]
     Indication: INFECTION
     Dates: start: 20100109, end: 20100112
  21. AUGMENTIN '125' [Concomitant]
     Indication: INFECTION
     Dates: start: 20100109, end: 20100117
  22. SMECTA [Concomitant]
     Indication: DIARRHOEA
     Dates: start: 20100111, end: 20100222
  23. IMODIUM [Concomitant]
     Indication: DIARRHOEA
     Dates: start: 20100110, end: 20100110
  24. KAYEXALATE [Concomitant]
     Indication: HYPERKALAEMIA
     Dates: start: 20100118, end: 20100118
  25. KAYEXALATE [Concomitant]
     Dates: start: 20100222, end: 20100222
  26. KAYEXALATE [Concomitant]
     Dosage: SPOONS
     Dates: start: 20100408, end: 20100415
  27. LASIX [Concomitant]
     Indication: HYPERTENSION
     Dates: start: 20100304, end: 20100304
  28. VENOFER [Concomitant]
     Indication: ANAEMIA
     Dates: start: 20100306, end: 20100306
  29. VENOFER [Concomitant]
     Dates: start: 20100308, end: 20100308
  30. DIFFU K [Concomitant]
     Indication: HYPOKALAEMIA
     Dates: start: 20100415, end: 20100420
  31. NEXIUM [Concomitant]
     Indication: PREMEDICATION
     Dates: start: 20100407
  32. SOLUPRED [Concomitant]
     Indication: LYMPHANGIOSIS CARCINOMATOSA
     Dates: start: 20100423
  33. DUPHALAC [Concomitant]
     Indication: CONSTIPATION PROPHYLAXIS
     Dates: start: 20100404, end: 20100421
  34. LANSOYL [Concomitant]
     Indication: CONSTIPATION PROPHYLAXIS
     Dosage: SPOONS
     Dates: start: 20100421
  35. POTASSIUM RICHARD [Concomitant]
     Indication: HYPOKALAEMIA
     Dates: start: 20100306, end: 20100308

REACTIONS (3)
  - CARDIAC FAILURE CONGESTIVE [None]
  - ESCHERICHIA INFECTION [None]
  - PLEURAL EFFUSION [None]
